FAERS Safety Report 7400644-9 (Version None)
Quarter: 2011Q1

REPORT INFORMATION
  Report Type: 
  Country: None (occurrence: None)
  Receive Date: 20110329
  Receipt Date: 20110314
  Transmission Date: 20110831
  Serious: Yes (Other)
  Sender: FDA-Public Use
  Company Number: 029298

PATIENT
  Sex: Female
  Weight: 104.3273 kg

DRUGS (4)
  1. CIMZIA [Suspect]
     Indication: RHEUMATOID ARTHRITIS
     Dosage: 400 MG 1X/2 WEEKS; SUBCUTANEOUS
     Route: 058
     Dates: start: 20110205
  2. PANTOPRAZOLE [Concomitant]
  3. LISINOPRIL [Concomitant]
  4. PREDNISONE [Concomitant]

REACTIONS (3)
  - DYSPNOEA [None]
  - RASH PRURITIC [None]
  - RASH ERYTHEMATOUS [None]
